FAERS Safety Report 19880191 (Version 1)
Quarter: 2021Q3

REPORT INFORMATION
  Report Type: Report from Study
  Country: None (occurrence: FR)
  Receive Date: 20210925
  Receipt Date: 20210925
  Transmission Date: 20211014
  Serious: Yes (Congenital Anomaly)
  Sender: FDA-Public Use
  Company Number: FR-ABBVIE-21K-056-4090624-00

PATIENT

DRUGS (1)
  1. VALPROATE SODIUM. [Suspect]
     Active Substance: VALPROATE SODIUM
     Indication: MATERNAL EXPOSURE TIMING UNSPECIFIED
     Route: 064

REACTIONS (2)
  - Foetal malformation [Unknown]
  - Foetal exposure during pregnancy [Unknown]
